FAERS Safety Report 24605134 (Version 1)
Quarter: 2024Q4

REPORT INFORMATION
  Report Type: Spontaneous
  Country: US (occurrence: US)
  Receive Date: 20241111
  Receipt Date: 20241111
  Transmission Date: 20250115
  Serious: No
  Sender: PARATEK PHARMACEUTICALS
  Company Number: US-PARATEK PHARMACEUTICALS, INC.-2023PTK00571

PATIENT
  Age: 55 Year
  Sex: Male

DRUGS (3)
  1. NUZYRA [Suspect]
     Active Substance: OMADACYCLINE
     Indication: Bacterial infection
     Dosage: 300 MG, 1X/DAY IN THE MORNING
     Route: 048
     Dates: start: 20231102
  2. NUZYRA [Suspect]
     Active Substance: OMADACYCLINE
     Indication: Vascular device infection
  3. UNSPECIFIED INGREDIENT [Concomitant]
     Active Substance: UNSPECIFIED INGREDIENT
     Dosage: UNK

REACTIONS (2)
  - Vomiting [Unknown]
  - Off label use [Not Recovered/Not Resolved]

NARRATIVE: CASE EVENT DATE: 20231102
